FAERS Safety Report 21553699 (Version 1)
Quarter: 2022Q4

REPORT INFORMATION
  Report Type: Report from Study
  Country: US (occurrence: US)
  Receive Date: 20221104
  Receipt Date: 20221104
  Transmission Date: 20230113
  Serious: No
  Sender: FDA-Public Use
  Company Number: US-ABBVIE-4135341

PATIENT
  Sex: Female

DRUGS (4)
  1. HUMIRA [Suspect]
     Active Substance: ADALIMUMAB
     Indication: Psoriasis
     Dosage: CITRATE FREE?FORM STRENGTH: 40 MG
     Route: 058
  2. Moderna  Covid-19 vaccine [Concomitant]
     Indication: COVID-19 immunisation
     Dosage: THIRD DOSE, ONE IN ONCE
     Route: 030
     Dates: start: 20211202, end: 20211202
  3. Moderna  Covid-19 vaccine [Concomitant]
     Indication: COVID-19 immunisation
     Dosage: SECOND DOSE, ONE IN ONCE
     Route: 030
     Dates: start: 20210403, end: 20210403
  4. Moderna  Covid-19 vaccine [Concomitant]
     Indication: COVID-19 immunisation
     Dosage: FIRST DOSE, ONE IN ONCE
     Route: 030
     Dates: start: 20210306, end: 20210306

REACTIONS (1)
  - Nasopharyngitis [Unknown]
